FAERS Safety Report 6267736-1 (Version None)
Quarter: 2009Q3

REPORT INFORMATION
  Report Type: 
  Country: None (occurrence: None)
  Receive Date: 20090714
  Receipt Date: 20090108
  Transmission Date: 20100115
  Serious: Yes (Life-Threatening, Hospitalization, Other)
  Sender: FDA-Public Use
  Company Number: FR-PFIZER INC-2009154994

PATIENT

DRUGS (1)
  1. MARAVIROC [Suspect]
     Dosage: 150 MG, 2X/DAY
     Dates: start: 20060221

REACTIONS (1)
  - NON-HODGKIN'S LYMPHOMA [None]
